FAERS Safety Report 13903786 (Version 2)
Quarter: 2017Q3

REPORT INFORMATION
  Report Type: Spontaneous
  Country: US (occurrence: US)
  Receive Date: 20170824
  Receipt Date: 20170905
  Transmission Date: 20171127
  Serious: Yes (Other)
  Sender: FDA-Public Use
  Company Number: US-BAUSCH-BL-2017-025255

PATIENT
  Sex: Male
  Weight: 81.72 kg

DRUGS (3)
  1. XIFAXAN [Suspect]
     Active Substance: RIFAXIMIN
     Indication: LIVER DISORDER
     Dosage: ABOUT 3 AND HALF YEARS AGO
     Route: 048
     Dates: start: 2014, end: 201404
  2. LACTULOSE. [Concomitant]
     Active Substance: LACTULOSE
     Indication: PORTAL SHUNT PROCEDURE
  3. LACTULOSE. [Concomitant]
     Active Substance: LACTULOSE
     Indication: LIVER DISORDER
     Dosage: 2-3 TIMES IN A DAY
     Route: 048

REACTIONS (1)
  - Pneumonia [Recovering/Resolving]

NARRATIVE: CASE EVENT DATE: 2014
